FAERS Safety Report 15650878 (Version 3)
Quarter: 2018Q4

REPORT INFORMATION
  Report Type: Spontaneous
  Country: US (occurrence: US)
  Receive Date: 20181123
  Receipt Date: 20181128
  Transmission Date: 20190205
  Serious: Yes (Other)
  Sender: FDA-Public Use
  Company Number: US-UNITED THERAPEUTICS-UNT-2018-019362

PATIENT
  Age: 44 Year
  Sex: Female
  Weight: 83.9 kg

DRUGS (1)
  1. REMODULIN [Suspect]
     Active Substance: TREPROSTINIL
     Indication: PULMONARY ARTERIAL HYPERTENSION
     Dosage: 0.041 ?G/KG, CONTINUING
     Route: 041
     Dates: start: 20181106

REACTIONS (8)
  - Headache [Unknown]
  - Loss of consciousness [Unknown]
  - Vomiting [Unknown]
  - Myalgia [Unknown]
  - Pain in jaw [Unknown]
  - Ankle fracture [Unknown]
  - Pain in extremity [Unknown]
  - Nausea [Unknown]

NARRATIVE: CASE EVENT DATE: 201811
